FAERS Safety Report 11737954 (Version 4)
Quarter: 2016Q1

REPORT INFORMATION
  Report Type: Spontaneous
  Country: GB (occurrence: GB)
  Receive Date: 20151113
  Receipt Date: 20160216
  Transmission Date: 20160525
  Serious: Yes (Other)
  Sender: FDA-Public Use
  Company Number: GB-JNJFOC-20151108749

PATIENT
  Age: 68 Year
  Sex: Male

DRUGS (4)
  1. COPEGUS [Suspect]
     Active Substance: RIBAVIRIN
     Indication: HEPATITIS C
     Dosage: 400 MG IN AM AND 600 MG IN PM
     Route: 065
     Dates: start: 20150611, end: 20150922
  2. BISOPROLOL [Concomitant]
     Active Substance: BISOPROLOL
     Route: 065
  3. PEGASYS [Suspect]
     Active Substance: PEGINTERFERON ALFA-2A
     Indication: HEPATITIS C
     Route: 058
     Dates: start: 20150611, end: 20150922
  4. OLYSIO [Suspect]
     Active Substance: SIMEPREVIR
     Indication: CHRONIC HEPATITIS C
     Route: 065
     Dates: start: 20150611, end: 20150925

REACTIONS (10)
  - Dyspnoea [Recovered/Resolved]
  - Dizziness [Unknown]
  - Atrial fibrillation [Recovered/Resolved]
  - Chest pain [Unknown]
  - Hypertension [Unknown]
  - Chest discomfort [Recovered/Resolved]
  - Depressed mood [Unknown]
  - Fatigue [Recovered/Resolved]
  - Dry skin [Unknown]
  - Exercise tolerance decreased [Recovered/Resolved]

NARRATIVE: CASE EVENT DATE: 20150618
